FAERS Safety Report 18222135 (Version 1)
Quarter: 2020Q3

REPORT INFORMATION
  Report Type: Spontaneous
  Country: US (occurrence: US)
  Receive Date: 20200902
  Receipt Date: 20200902
  Transmission Date: 20201103
  Serious: No
  Sender: FDA-Public Use
  Company Number: None

PATIENT
  Age: 57 Year
  Sex: Female
  Weight: 86.18 kg

DRUGS (2)
  1. TALTZ [Suspect]
     Active Substance: IXEKIZUMAB
     Indication: PSORIATIC ARTHROPATHY
     Dosage: ?          OTHER FREQUENCY:SC AT WK 12 THEN Q4 W AS DIRECTED.?
     Route: 058
     Dates: start: 201912
  2. TALTZ [Suspect]
     Active Substance: IXEKIZUMAB
     Indication: PSORIASIS
     Dosage: ?          OTHER FREQUENCY:SC AT WK 12 THEN Q4 W AS DIRECTED.?
     Route: 058
     Dates: start: 201912

REACTIONS (4)
  - Cough [None]
  - Chest discomfort [None]
  - Arthralgia [None]
  - Sinus disorder [None]
